FAERS Safety Report 17772468 (Version 2)
Quarter: 2020Q2

REPORT INFORMATION
  Report Type: Report from Study
  Country: US (occurrence: US)
  Receive Date: 20200512
  Receipt Date: 20200619
  Transmission Date: 20200714
  Serious: Yes (Other)
  Sender: FDA-Public Use
  Company Number: NVSC2020US127558

PATIENT
  Age: 38 Year
  Sex: Male

DRUGS (1)
  1. GILENYA [Suspect]
     Active Substance: FINGOLIMOD HYDROCHLORIDE
     Indication: MULTIPLE SCLEROSIS
     Dosage: 0.5 MG, QD
     Route: 048
     Dates: start: 20190610

REACTIONS (4)
  - Muscle spasticity [Unknown]
  - Atrial fibrillation [Unknown]
  - Central nervous system lesion [Unknown]
  - Product communication issue [Unknown]

NARRATIVE: CASE EVENT DATE: 20190610
